FAERS Safety Report 9621267 (Version 3)
Quarter: 2014Q3

REPORT INFORMATION
  Report Type: Spontaneous
  Country: US (occurrence: US)
  Receive Date: 20131015
  Receipt Date: 20140814
  Transmission Date: 20150326
  Serious: Yes (Disabling, Other)
  Sender: FDA-Public Use
  Company Number: US-BAYER-2013-123658

PATIENT
  Age: 35 Year
  Sex: Female

DRUGS (5)
  1. YAZ [Suspect]
     Active Substance: DROSPIRENONE\ETHINYL ESTRADIOL
  2. LEXAPRO [Concomitant]
     Active Substance: ESCITALOPRAM OXALATE
  3. YASMIN [Suspect]
     Active Substance: DROSPIRENONE\ETHINYL ESTRADIOL
     Dosage: UNK
     Dates: start: 20070816, end: 20081010
  4. FAMOTIDINE. [Concomitant]
     Active Substance: FAMOTIDINE
  5. OCELLA [Suspect]
     Active Substance: DROSPIRENONE\ETHINYL ESTRADIOL
     Dosage: UNK
     Dates: start: 20081010

REACTIONS (11)
  - Thrombophlebitis superficial [None]
  - Anxiety [None]
  - Limb discomfort [None]
  - General physical health deterioration [None]
  - Fear of disease [None]
  - Intracardiac thrombus [None]
  - Thrombosis [None]
  - Injury [None]
  - Pain [None]
  - Anhedonia [None]
  - Emotional distress [None]

NARRATIVE: CASE EVENT DATE: 20081208
